FAERS Safety Report 8069785-X (Version None)
Quarter: 2012Q1

REPORT INFORMATION
  Report Type: 
  Country: None (occurrence: None)
  Receive Date: 20120125
  Receipt Date: 20120122
  Transmission Date: 20120608
  Serious: No
  Sender: FDA-Public Use
  Company Number: US-PFIZER INC-2012017707

PATIENT
  Sex: Female
  Weight: 72.562 kg

DRUGS (2)
  1. ZOSYN [Suspect]
     Indication: PNEUMONIA ASPIRATION
     Dosage: 3.5 MG, EVERY 4 OR 6 HOURS
     Dates: start: 20120118, end: 20120101
  2. WARFARIN SODIUM [Concomitant]
     Indication: DEEP VEIN THROMBOSIS
     Dosage: UNK

REACTIONS (2)
  - BLEEDING TIME PROLONGED [None]
  - INTERNATIONAL NORMALISED RATIO INCREASED [None]
